FAERS Safety Report 17422478 (Version 3)
Quarter: 2020Q1

REPORT INFORMATION
  Report Type: Spontaneous
  Country: ES (occurrence: ES)
  Receive Date: 20200215
  Receipt Date: 20200319
  Transmission Date: 20200409
  Serious: Yes (Hospitalization)
  Sender: FDA-Public Use
  Company Number: ES-SUN PHARMACEUTICAL INDUSTRIES LTD-2020RR-236468

PATIENT
  Age: 70 Year
  Sex: Male

DRUGS (2)
  1. STOPCOLD 5 MG/120 MG COMPRIMIDOS DE LIBERACION PROLONGADA, 20 COMPR... [Suspect]
     Active Substance: CETIRIZINE HYDROCHLORIDE\PSEUDOEPHEDRINE HYDROCHLORIDE
     Indication: SELF-MEDICATION
     Dosage: UNK
     Route: 065
     Dates: start: 20190415, end: 20190420
  2. FENOFIBRATE. [Suspect]
     Active Substance: FENOFIBRATE
     Indication: PRODUCT USED FOR UNKNOWN INDICATION
     Dosage: UNK
     Route: 065
     Dates: start: 20190412, end: 20190420

REACTIONS (2)
  - Neutropenia [Recovered/Resolved]
  - Tachycardia [Recovering/Resolving]

NARRATIVE: CASE EVENT DATE: 20190419
